FAERS Safety Report 8199427-4 (Version None)
Quarter: 2012Q1

REPORT INFORMATION
  Report Type: 
  Country: None (occurrence: None)
  Receive Date: 20120309
  Receipt Date: 20120305
  Transmission Date: 20120608
  Serious: Yes (Life-Threatening, Hospitalization, Other)
  Sender: FDA-Public Use
  Company Number: GB-ABBOTT-12P-167-0899798-00

PATIENT
  Sex: Female
  Weight: 46 kg

DRUGS (6)
  1. CODENE [Concomitant]
     Indication: DIARRHOEA
     Route: 048
  2. LOPERAMIDE HCL [Concomitant]
     Indication: DIARRHOEA
     Route: 048
  3. HUMIRA [Suspect]
     Indication: CROHN'S DISEASE
     Dosage: FORTNIGHT
     Route: 058
     Dates: start: 20111117
  4. OMEPRAZOLE [Concomitant]
     Indication: DYSPEPSIA
     Route: 048
  5. TIOTROPIUM [Concomitant]
     Indication: CHRONIC OBSTRUCTIVE PULMONARY DISEASE
     Dates: start: 20100101
  6. CREON [Concomitant]
     Indication: PANCREATIC INSUFFICIENCY
     Dates: start: 20080101

REACTIONS (5)
  - CARDIAC FAILURE [None]
  - LEFT VENTRICULAR FAILURE [None]
  - TROPONIN INCREASED [None]
  - CHRONIC OBSTRUCTIVE PULMONARY DISEASE [None]
  - DYSPNOEA [None]
